FAERS Safety Report 4373777-1 (Version None)
Quarter: 2004Q2

REPORT INFORMATION
  Report Type: 
  Country: None (occurrence: None)
  Receive Date: 20040607
  Receipt Date: 20040607
  Transmission Date: 20050107
  Serious: No
  Sender: FDA-Public Use
  Company Number: None

PATIENT
  Age: 63 Year
  Sex: Female
  Weight: 52.1637 kg

DRUGS (7)
  1. OXALIPLATIN [Suspect]
     Indication: COLON CANCER METASTATIC
     Dosage: 85 MG/M2 Q 2 WEEKS
     Dates: start: 20031223, end: 20040428
  2. OXALIPLATIN [Suspect]
  3. LEUCOVORIN [Concomitant]
  4. FLUOROURACIL [Concomitant]
  5. ZOCOR [Concomitant]
  6. PROTONIX [Concomitant]
  7. MULTI-VITAMINS [Concomitant]

REACTIONS (6)
  - DIFFICULTY IN WALKING [None]
  - DROOLING [None]
  - DYSARTHRIA [None]
  - NEUROPATHY PERIPHERAL [None]
  - SALIVARY HYPERSECRETION [None]
  - TRISMUS [None]
